FAERS Safety Report 25000021 (Version 1)
Quarter: 2025Q1

REPORT INFORMATION
  Report Type: Spontaneous
  Country: US (occurrence: US)
  Receive Date: 20250222
  Receipt Date: 20250222
  Transmission Date: 20250409
  Serious: No
  Sender: SANOFI AVENTIS
  Company Number: US-SA-2025SA047821

PATIENT
  Age: 22 Year
  Sex: Female

DRUGS (15)
  1. DUPIXENT [Suspect]
     Active Substance: DUPILUMAB
     Indication: Asthma
     Route: 058
     Dates: start: 20240514
  2. NORTRIPTYLINE [Concomitant]
     Active Substance: NORTRIPTYLINE
     Indication: Product used for unknown indication
  3. GLUCAGON [Concomitant]
     Active Substance: GLUCAGON
  4. DOXYCYCLINE [Concomitant]
     Active Substance: DOXYCYCLINE
  5. AZELASTINE [Concomitant]
     Active Substance: AZELASTINE
  6. ALBUTEROL [Concomitant]
     Active Substance: ALBUTEROL
  7. XOLAIR [Concomitant]
     Active Substance: OMALIZUMAB
  8. NALTREXONE [Concomitant]
     Active Substance: NALTREXONE
  9. NOVOLOG [Concomitant]
     Active Substance: INSULIN ASPART
  10. LANSOPRAZOLE [Concomitant]
     Active Substance: LANSOPRAZOLE
  11. ZYRTEC [Concomitant]
     Active Substance: CETIRIZINE HYDROCHLORIDE
  12. SYMBICORT [Concomitant]
     Active Substance: BUDESONIDE\FORMOTEROL FUMARATE DIHYDRATE
  13. EPIPEN [Concomitant]
     Active Substance: EPINEPHRINE
  14. PROPRANOLOL HYDROCHLORIDE [Concomitant]
     Active Substance: PROPRANOLOL HYDROCHLORIDE
  15. CYCLOBENZAPRINE [Concomitant]
     Active Substance: CYCLOBENZAPRINE

REACTIONS (1)
  - Drug ineffective [Unknown]

NARRATIVE: CASE EVENT DATE: 20250214
